FAERS Safety Report 10878910 (Version 2)
Quarter: 2015Q2

REPORT INFORMATION
  Report Type: Spontaneous
  Country: IT (occurrence: IT)
  Receive Date: 20150302
  Receipt Date: 20150420
  Transmission Date: 20150821
  Serious: Yes (Other)
  Sender: FDA-Public Use
  Company Number: IT-PFIZER INC-2015068566

PATIENT
  Age: 51 Year
  Sex: Female

DRUGS (2)
  1. CONCOR [Suspect]
     Active Substance: BISOPROLOL FUMARATE
     Indication: HYPERTENSION
     Dosage: 10 MG, DAILY
     Route: 048
  2. CARDURA [Suspect]
     Active Substance: DOXAZOSIN MESYLATE
     Dosage: 8 MG, DAILY
     Route: 048

REACTIONS (6)
  - Hypotension [Recovered/Resolved]
  - Hypertensive crisis [Unknown]
  - Dysarthria [Recovered/Resolved]
  - Headache [Recovered/Resolved]
  - Extra dose administered [Unknown]
  - Disorientation [Recovered/Resolved]

NARRATIVE: CASE EVENT DATE: 20150203
